FAERS Safety Report 9534214 (Version 3)
Quarter: 2013Q3

REPORT INFORMATION
  Report Type: Spontaneous
  Country: TH (occurrence: TH)
  Receive Date: 20130918
  Receipt Date: 20130926
  Transmission Date: 20140515
  Serious: Yes (Hospitalization, Other)
  Sender: FDA-Public Use
  Company Number: TH-BAXTER-2013BAX034117

PATIENT
  Age: 59 Year
  Sex: Female

DRUGS (2)
  1. DIANEAL PD-2 PERITONEAL DIALYSIS SOL WITH 1.5 PERCENT DEXT [Suspect]
     Indication: PERITONEAL DIALYSIS
     Route: 033
     Dates: start: 20130411, end: 20130831
  2. HEPARIN [Concomitant]
     Indication: PERITONEAL DIALYSIS
     Route: 033
     Dates: start: 20130815

REACTIONS (3)
  - Aspergillus infection [Unknown]
  - Peritonitis [Not Recovered/Not Resolved]
  - Device related infection [Unknown]
